FAERS Safety Report 7062593 (Version 12)
Quarter: 2013Q3

REPORT INFORMATION
  Report Type: Report from Study
  Country: CA (occurrence: CA)
  Receive Date: 20090724
  Receipt Date: 20130904
  Transmission Date: 20140515
  Serious: Yes (Hospitalization, Other)
  Sender: FDA-Public Use
  Company Number: PHHY2009CA29284

PATIENT
  Age: 72 Year
  Sex: Male

DRUGS (13)
  1. EXJADE [Suspect]
     Indication: MYELODYSPLASTIC SYNDROME
     Dosage: 750 MG, QD
     Route: 048
     Dates: start: 200904
  2. EXJADE [Suspect]
     Dosage: UNK UKN, UNK
     Route: 048
     Dates: start: 20090713
  3. EXJADE [Suspect]
     Dosage: 875 MG, QD
     Route: 048
  4. EXJADE [Suspect]
     Dosage: 1250 MG, QD
     Route: 048
  5. EXJADE [Suspect]
     Dosage: 500 MG, DAILY
     Route: 048
     Dates: start: 2009
  6. EXJADE [Suspect]
     Dosage: 750 MG, DAILY
     Route: 048
  7. EXJADE [Suspect]
     Dosage: 500 MG, QD
     Route: 048
  8. EXJADE [Suspect]
     Dosage: 1000 MG QD, THREE OUT OF FOUR WEEKS A MONTH
     Route: 048
  9. DOMPERIDONE [Concomitant]
     Dosage: 10 MG, UNK
     Route: 048
  10. LANTUS [Concomitant]
     Dosage: 24-26 UNITS QD
  11. GLYBURIDE [Concomitant]
     Dosage: 10 MG, BID
     Route: 048
  12. CLOXACILLIN [Concomitant]
     Indication: INFECTION
     Dosage: 12 G, UNK
  13. INSULIN [Concomitant]

REACTIONS (10)
  - Cystitis [Recovering/Resolving]
  - Sepsis [Unknown]
  - Infection [Unknown]
  - Renal disorder [Recovering/Resolving]
  - Serum ferritin increased [Unknown]
  - Decreased appetite [Unknown]
  - Vomiting [Unknown]
  - Therapeutic response decreased [Unknown]
  - Haemoglobin decreased [Unknown]
  - Blood creatinine increased [Unknown]
